FAERS Safety Report 15154286 (Version 4)
Quarter: 2018Q4

REPORT INFORMATION
  Report Type: Report from Study
  Country: US (occurrence: US)
  Receive Date: 20180717
  Receipt Date: 20181011
  Transmission Date: 20190204
  Serious: Yes (Hospitalization, Other)
  Sender: FDA-Public Use
  Company Number: US-GILEAD-2018-0345738

PATIENT
  Age: 56 Year
  Sex: Female

DRUGS (4)
  1. AMLODIPINE [Concomitant]
     Active Substance: AMLODIPINE BESYLATE
  2. ADCIRCA [Concomitant]
     Active Substance: TADALAFIL
  3. AMBRISENTAN [Suspect]
     Active Substance: AMBRISENTAN
     Indication: PULMONARY ARTERIAL HYPERTENSION
     Dosage: 10 MG, QD
     Route: 065
     Dates: start: 20150330
  4. TYVASO [Concomitant]
     Active Substance: TREPROSTINIL

REACTIONS (12)
  - Ill-defined disorder [Not Recovered/Not Resolved]
  - Vomiting [Unknown]
  - Appendicitis [Unknown]
  - Asthma [Unknown]
  - Dysphonia [Not Recovered/Not Resolved]
  - Dyspnoea [Unknown]
  - Chronic obstructive pulmonary disease [Unknown]
  - Diarrhoea [Unknown]
  - Pharyngitis [Not Recovered/Not Resolved]
  - Food poisoning [Unknown]
  - Emphysema [Unknown]
  - Anxiety [Not Recovered/Not Resolved]
